FAERS Safety Report 12120181 (Version 1)
Quarter: 2016Q1

REPORT INFORMATION
  Report Type: Spontaneous
  Country: US (occurrence: US)
  Receive Date: 20160226
  Receipt Date: 20160226
  Transmission Date: 20160526
  Serious: Yes (Other)
  Sender: FDA-Public Use
  Company Number: US-BAYER-2016-036705

PATIENT
  Sex: Male

DRUGS (2)
  1. KOGENATE FS [Suspect]
     Active Substance: ANTIHEMOPHILIC FACTOR, HUMAN RECOMBINANT
     Indication: METRORRHAGIA
     Dosage: 500 U, UNK
  2. KOGENATE FS [Suspect]
     Active Substance: ANTIHEMOPHILIC FACTOR, HUMAN RECOMBINANT
     Indication: FACTOR VIII DEFICIENCY
     Dosage: 2566 IU (2055 IU + 511 IU) SLOW, 3 TIMES A WEEK, AND EVERY 12-24 HOURS AS NEEDED

REACTIONS (2)
  - Back pain [Recovered/Resolved]
  - Haemorrhage [Recovered/Resolved]
